FAERS Safety Report 16529650 (Version 1)
Quarter: 2019Q3

REPORT INFORMATION
  Report Type: Spontaneous
  Country: CN (occurrence: CN)
  Receive Date: 20190703
  Receipt Date: 20190703
  Transmission Date: 20191004
  Serious: Yes (Hospitalization)
  Sender: FDA-Public Use
  Company Number: CN-ELI_LILLY_AND_COMPANY-CN201905010939

PATIENT
  Age: 57 Year
  Sex: Male

DRUGS (1)
  1. HUMULIN 70/30 [Suspect]
     Active Substance: INSULIN HUMAN
     Indication: TYPE 2 DIABETES MELLITUS
     Dosage: 14 U, UNKNOWN
     Route: 058

REACTIONS (4)
  - Diabetes mellitus inadequate control [Unknown]
  - Cardiac disorder [Unknown]
  - Speech disorder [Unknown]
  - Renal disorder [Unknown]
